FAERS Safety Report 6175799-7 (Version None)
Quarter: 2009Q2

REPORT INFORMATION
  Report Type: 
  Country: None (occurrence: None)
  Receive Date: 20090501
  Receipt Date: 20090330
  Transmission Date: 20091009
  Serious: Yes (Other)
  Sender: FDA-Public Use
  Company Number: US-BAYER-200911030BCC

PATIENT
  Age: 40 Year
  Sex: Female

DRUGS (1)
  1. ALEVE [Suspect]
     Indication: DRUG USE FOR UNKNOWN INDICATION
     Dosage: UNIT DOSE: 220 MG
     Route: 048
     Dates: start: 20090327

REACTIONS (3)
  - DYSPHAGIA [None]
  - OESOPHAGEAL DISCOMFORT [None]
  - SENSATION OF FOREIGN BODY [None]
